FAERS Safety Report 17337976 (Version 1)
Quarter: 2020Q1

REPORT INFORMATION
  Report Type: Spontaneous
  Country: FR (occurrence: FR)
  Receive Date: 20200129
  Receipt Date: 20200129
  Transmission Date: 20200409
  Serious: Yes (Other)
  Sender: FDA-Public Use
  Company Number: FR-TEVA-2020-FR-1174994

PATIENT
  Age: 36 Year
  Sex: Female
  Weight: 44 kg

DRUGS (1)
  1. AMOXICILLINE TEVA 1 G, COMPRIM? DISPERSIBLE [Suspect]
     Active Substance: AMOXICILLIN
     Indication: VAGINAL INFECTION
     Dosage: 3 DF
     Route: 048
     Dates: start: 20191223, end: 20191228

REACTIONS (6)
  - Mood altered [Recovering/Resolving]
  - Brief psychotic disorder with marked stressors [Recovering/Resolving]
  - Anxiety [Not Recovered/Not Resolved]
  - Irritability [Recovering/Resolving]
  - Tension [Recovering/Resolving]
  - Mental disorder [Recovering/Resolving]

NARRATIVE: CASE EVENT DATE: 20191228
